FAERS Safety Report 13060122 (Version 1)
Quarter: 2016Q4

REPORT INFORMATION
  Report Type: Spontaneous
  Country: FR (occurrence: FR)
  Receive Date: 20161223
  Receipt Date: 20161223
  Transmission Date: 20170207
  Serious: Yes (Death, Life-Threatening, Hospitalization, Other)
  Sender: FDA-Public Use
  Company Number: FR-BRISTOL-MYERS SQUIBB COMPANY-BMS-2016-108737

PATIENT
  Age: 59 Year
  Sex: Female

DRUGS (5)
  1. CODEINE                            /00012602/ [Concomitant]
     Active Substance: CODEINE PHOSPHATE
     Indication: DRUG TOLERANCE DECREASED
     Route: 065
  2. DOLIPRANE [Concomitant]
     Active Substance: ACETAMINOPHEN
     Indication: PRODUCT USED FOR UNKNOWN INDICATION
     Route: 065
  3. MORPHINE                           /00036302/ [Concomitant]
     Active Substance: MORPHINE
     Indication: DRUG TOLERANCE DECREASED
     Route: 065
  4. OPDIVO [Suspect]
     Active Substance: NIVOLUMAB
     Indication: LUNG ADENOCARCINOMA
     Dosage: 150 MG, Q2WK
     Route: 042
     Dates: start: 20160928, end: 20161109
  5. NEBIVOLOL. [Concomitant]
     Active Substance: NEBIVOLOL
     Indication: PRODUCT USED FOR UNKNOWN INDICATION
     Route: 065

REACTIONS (3)
  - Anaemia [Unknown]
  - Packed red blood cell transfusion [Unknown]
  - Generalised tonic-clonic seizure [Fatal]

NARRATIVE: CASE EVENT DATE: 20161113
